FAERS Safety Report 25022185 (Version 1)
Quarter: 2025Q1

REPORT INFORMATION
  Report Type: Spontaneous
  Country: GB (occurrence: GB)
  Receive Date: 20250228
  Receipt Date: 20250228
  Transmission Date: 20250409
  Serious: Yes (Other)
  Sender: TEVA
  Company Number: GB-MHRA-TPP14287108C9927149YC1739978511203

PATIENT
  Age: 15 Year
  Sex: Male
  Weight: 62 kg

DRUGS (2)
  1. LISDEXAMFETAMINE [Suspect]
     Active Substance: LISDEXAMFETAMINE
     Indication: Ill-defined disorder
     Dosage: AT 8AM
     Route: 065
     Dates: start: 20240612, end: 20250122
  2. METHYLPHENIDATE [Concomitant]
     Active Substance: METHYLPHENIDATE
     Indication: Ill-defined disorder
     Dosage: DAILY IN THE MORNING
     Dates: start: 20250219

REACTIONS (2)
  - Blue toe syndrome [Recovered/Resolved]
  - Pain [Unknown]
